FAERS Safety Report 7052745-5 (Version None)
Quarter: 2010Q4

REPORT INFORMATION
  Report Type: 
  Country: None (occurrence: None)
  Receive Date: 20101013
  Receipt Date: 20100929
  Transmission Date: 20110411
  Serious: Yes (Hospitalization, Other)
  Sender: FDA-Public Use
  Company Number: 2009SP036537

PATIENT
  Age: 30 Year
  Sex: Female
  Weight: 81.6475 kg

DRUGS (4)
  1. NUVARING [Suspect]
     Indication: MENSTRUATION IRREGULAR
     Dates: start: 20090415, end: 20090530
  2. PROVERA [Suspect]
     Indication: MENORRHAGIA
     Dates: start: 20090415, end: 20090422
  3. CELEXA [Concomitant]
  4. ALBUTEROL [Concomitant]

REACTIONS (16)
  - ANAEMIA [None]
  - ATRIAL SEPTAL DEFECT [None]
  - CHOLELITHIASIS [None]
  - CONSTIPATION [None]
  - DECREASED APPETITE [None]
  - DEEP VEIN THROMBOSIS [None]
  - DIARRHOEA [None]
  - DIZZINESS [None]
  - DYSPEPSIA [None]
  - GOITRE [None]
  - HEPATIC STEATOSIS [None]
  - LEFT VENTRICULAR HYPERTROPHY [None]
  - NAUSEA [None]
  - PANCREATITIS ACUTE [None]
  - PULMONARY EMBOLISM [None]
  - WEIGHT INCREASED [None]
